FAERS Safety Report 23630477 (Version 1)
Quarter: 2024Q1

REPORT INFORMATION
  Report Type: Spontaneous
  Country: US (occurrence: US)
  Receive Date: 20240314
  Receipt Date: 20240314
  Transmission Date: 20240410
  Serious: No
  Sender: FDA-Public Use
  Company Number: US-ALVOGEN-2023090610

PATIENT
  Sex: Male

DRUGS (2)
  1. BUPRENORPHINE HYDROCHLORIDE AND NALOXONE HYDROCHLORIDE [Suspect]
     Active Substance: BUPRENORPHINE HYDROCHLORIDE\NALOXONE HYDROCHLORIDE
     Indication: Product used for unknown indication
  2. DIAZEPAM [Concomitant]
     Active Substance: DIAZEPAM
     Indication: Product used for unknown indication
     Dosage: JUST ENDED LAST WEEK, WAS TAKING A HALF A PILL. MORNING AND AT NIGHT.

REACTIONS (19)
  - Weight decreased [Unknown]
  - Dysphagia [Unknown]
  - Urinary retention [Unknown]
  - Dyschezia [Unknown]
  - Illness [Unknown]
  - Hypotonia [Unknown]
  - Nasopharyngitis [Unknown]
  - Tinnitus [Unknown]
  - Gait disturbance [Unknown]
  - Aphasia [Unknown]
  - Oral discomfort [Unknown]
  - Swollen tongue [Unknown]
  - Tremor [Unknown]
  - Tooth loss [Unknown]
  - Hypotension [Unknown]
  - Dyspnoea [Unknown]
  - Headache [Unknown]
  - Hyperhidrosis [Unknown]
  - Abdominal pain [Unknown]
